FAERS Safety Report 5565049-4 (Version None)
Quarter: 2007Q4

REPORT INFORMATION
  Report Type: 
  Country: None (occurrence: None)
  Receive Date: 20071218
  Receipt Date: 20071214
  Transmission Date: 20080405
  Serious: Yes (Death, Other)
  Sender: FDA-Public Use
  Company Number: MX-BRISTOL-MYERS SQUIBB COMPANY-13955992

PATIENT
  Age: 56 Year
  Sex: Female

DRUGS (4)
  1. BLINDED: SAXAGLIPTIN [Suspect]
     Indication: TYPE 2 DIABETES MELLITUS
     Dosage: 5/10MG
     Route: 048
     Dates: start: 20070130, end: 20071021
  2. METFORMIN HCL [Suspect]
     Indication: TYPE 2 DIABETES MELLITUS
     Route: 048
     Dates: start: 20070130, end: 20071021
  3. PLACEBO [Suspect]
     Indication: TYPE 2 DIABETES MELLITUS
     Route: 048
     Dates: start: 20070130, end: 20071021
  4. CAPTOPRIL [Concomitant]
     Dates: start: 20020201

REACTIONS (2)
  - PANCREATIC NEOPLASM [None]
  - SEPSIS [None]
